FAERS Safety Report 10197785 (Version 2)
Quarter: 2014Q2

REPORT INFORMATION
  Report Type: Spontaneous
  Country: FR (occurrence: FR)
  Receive Date: 20140527
  Receipt Date: 20140617
  Transmission Date: 20141212
  Serious: Yes (Hospitalization, Other)
  Sender: FDA-Public Use
  Company Number: 2014SP000066

PATIENT
  Age: 46 Year
  Sex: Female

DRUGS (17)
  1. CYTARABINE [Suspect]
     Indication: CHEMOTHERAPY
     Dates: start: 20131128
  2. METHOTREXATE [Suspect]
     Indication: CHEMOTHERAPY
     Dates: start: 20131025
  3. METHOTREXATE [Suspect]
     Indication: CHEMOTHERAPY
     Dates: start: 20131128
  4. METHOTREXATE [Suspect]
     Indication: CHEMOTHERAPY
  5. NILOTINIB HYDROCHLORIDE [Suspect]
     Indication: CHEMOTHERAPY
     Dates: start: 20131028
  6. SOLU-MEDROL [Concomitant]
     Dates: start: 20131025
  7. VINCRISTINE [Concomitant]
     Dates: start: 20131028
  8. DEXAMETHASONE [Concomitant]
  9. PHLOROGLUCINOL [Concomitant]
  10. TRIMETHYLPHLOROGLUCINOL [Concomitant]
  11. LACTULOSE [Concomitant]
  12. SULFAMETHOXAZOLE [Concomitant]
  13. TRIMETHOPRIM [Concomitant]
  14. LEDERFOLIN [Concomitant]
  15. BISOPROLOL [Concomitant]
  16. LUTERAN [Concomitant]
  17. LEXOMIL [Concomitant]

REACTIONS (10)
  - Chemotherapy toxicity attenuation [Recovered/Resolved]
  - Renal failure acute [Recovered/Resolved]
  - Encephalitis [Recovered/Resolved]
  - Dysarthria [Recovered/Resolved]
  - Cerebellar syndrome [Recovered/Resolved]
  - Pyrexia [Recovered/Resolved]
  - Pain in extremity [Recovered/Resolved]
  - Bone marrow failure [Recovered/Resolved]
  - Neuropathy peripheral [Recovering/Resolving]
  - Gait disturbance [Recovering/Resolving]
